FAERS Safety Report 12706424 (Version 2)
Quarter: 2016Q3

REPORT INFORMATION
  Report Type: Spontaneous
  Country: US (occurrence: US)
  Receive Date: 20160901
  Receipt Date: 20160929
  Transmission Date: 20161109
  Serious: No
  Sender: FDA-Public Use
  Company Number: US-PFIZER INC-2016408211

PATIENT
  Age: 39 Year
  Sex: Female
  Weight: 113.83 kg

DRUGS (1)
  1. IBRANCE [Suspect]
     Active Substance: PALBOCICLIB
     Indication: BREAST CANCER
     Dosage: 125 MG, CYCLIC, (1D-21D Q 28D) (DAY 1-21 Q 28 DAYS)
     Route: 048
     Dates: start: 20160804

REACTIONS (3)
  - Neutrophil count decreased [Unknown]
  - Drug dose omission [Unknown]
  - Memory impairment [Unknown]
